FAERS Safety Report 14975338 (Version 1)
Quarter: 2018Q2

REPORT INFORMATION
  Report Type: Spontaneous
  Country: US (occurrence: US)
  Receive Date: 20180514
  Receipt Date: 20180514
  Transmission Date: 20180711
  Serious: Yes (Hospitalization)
  Sender: FDA-Public Use
  Company Number: None

PATIENT
  Age: 57 Year
  Sex: Male

DRUGS (1)
  1. IBRUTINIB [Suspect]
     Active Substance: IBRUTINIB
     Indication: CHRONIC LYMPHOCYTIC LEUKAEMIA
     Route: 048
     Dates: start: 20150309, end: 20180409

REACTIONS (6)
  - Peripheral swelling [None]
  - Dermatitis [None]
  - Skin hyperpigmentation [None]
  - Lung infiltration [None]
  - Lymphadenopathy [None]
  - Neutropenia [None]

NARRATIVE: CASE EVENT DATE: 20180508
